FAERS Safety Report 4603164-X (Version None)
Quarter: 2005Q1

REPORT INFORMATION
  Report Type: 
  Country: None (occurrence: None)
  Receive Date: 20050307
  Receipt Date: 20050221
  Transmission Date: 20050727
  Serious: No
  Sender: FDA-Public Use
  Company Number: 05H-028-0289940

PATIENT
  Age: 49 Year
  Sex: Male

DRUGS (4)
  1. STERILE WATER FOR INJECTION, PRES.-FREE,  FT VIAL [Suspect]
     Dosage: ONCE A WEEK, SUBCUTANEOUS
     Route: 057
     Dates: start: 20040527, end: 20041222
  2. PEGETRON [Suspect]
     Indication: HEPATITIS C
     Dosage: SEE IMAGE
     Route: 058
     Dates: start: 20040527, end: 20040817
  3. PEGETRON [Suspect]
     Indication: HEPATITIS C
     Dosage: SEE IMAGE
     Route: 058
     Dates: start: 20040817, end: 20041223
  4. RIBAVIRIN [Suspect]
     Indication: HEPATITIS C
     Dosage: DAILY, ORAL
     Route: 048
     Dates: start: 20040527, end: 20041223

REACTIONS (5)
  - INJECTION SITE DISCOMFORT [None]
  - NEUTROPHIL COUNT DECREASED [None]
  - SKIN INFECTION [None]
  - SKIN NECROSIS [None]
  - STAPHYLOCOCCAL INFECTION [None]
